FAERS Safety Report 9442782 (Version 1)
Quarter: 2013Q3

REPORT INFORMATION
  Report Type: Spontaneous
  Country: US (occurrence: US)
  Receive Date: 20130806
  Receipt Date: 20130806
  Transmission Date: 20140515
  Serious: No
  Sender: FDA-Public Use
  Company Number: US-ABBOTT-12P-163-1008176-00

PATIENT
  Age: 32 Year
  Sex: Female
  Weight: 60.38 kg

DRUGS (1)
  1. DEPAKOTE ER [Suspect]
     Indication: BIPOLAR DISORDER
     Dates: start: 20120929, end: 20121105

REACTIONS (1)
  - Tinnitus [Not Recovered/Not Resolved]
